FAERS Safety Report 14128195 (Version 1)
Quarter: 2017Q4

REPORT INFORMATION
  Report Type: Spontaneous
  Country: US (occurrence: None)
  Receive Date: 20171025
  Receipt Date: 20171025
  Transmission Date: 20180321
  Serious: Yes (Other)
  Sender: FDA-Public Use
  Company Number: None

PATIENT
  Age: 43 Year
  Sex: Female
  Weight: 72.57 kg

DRUGS (14)
  1. COPAXONE [Suspect]
     Active Substance: GLATIRAMER ACETATE
     Indication: MULTIPLE SCLEROSIS
     Dosage: 1 INJECTION(S) 3 X WEEK GIVEN INTO/UNDER THE SKIN?
     Route: 058
  2. VITAMIN C [Concomitant]
     Active Substance: ASCORBIC ACID
  3. VALIUMM [Concomitant]
  4. RESPI CLICK INHALER [Concomitant]
  5. EPIPEN [Concomitant]
     Active Substance: EPINEPHRINE
  6. VITAMIN D [Concomitant]
     Active Substance: CHOLECALCIFEROL
  7. VITAMIN B12 [Concomitant]
     Active Substance: CYANOCOBALAMIN
  8. PEPPERMINT OIL [Concomitant]
     Active Substance: PEPPERMINT OIL
  9. BACLOFEN. [Suspect]
     Active Substance: BACLOFEN
  10. BIOTIN [Concomitant]
     Active Substance: BIOTIN
  11. ALIEVE [Concomitant]
  12. FLAXSEED [Concomitant]
     Active Substance: FLAX SEED
  13. ZYRTEC [Concomitant]
     Active Substance: CETIRIZINE HYDROCHLORIDE
  14. DAILY VITAMIN [Concomitant]
     Active Substance: VITAMINS

REACTIONS (4)
  - Injection site discolouration [None]
  - Injection site atrophy [None]
  - Injection site urticaria [None]
  - Injection site bruising [None]

NARRATIVE: CASE EVENT DATE: 20170809
